FAERS Safety Report 8018685-X (Version None)
Quarter: 2012Q1

REPORT INFORMATION
  Report Type: 
  Country: None (occurrence: None)
  Receive Date: 20120103
  Receipt Date: 20120103
  Transmission Date: 20120608
  Serious: No
  Sender: FDA-Public Use
  Company Number: None

PATIENT
  Age: 41 Year
  Sex: Male
  Weight: 83.914 kg

DRUGS (1)
  1. SERTRALINE HYDROCHLORIDE [Suspect]
     Indication: ANXIETY DISORDER
     Dosage: 150 MG
     Route: 048
     Dates: start: 20080901, end: 20090930

REACTIONS (3)
  - DYSTONIA [None]
  - MOVEMENT DISORDER [None]
  - DYSKINESIA [None]
